FAERS Safety Report 10289469 (Version 2)
Quarter: 2014Q3

REPORT INFORMATION
  Report Type: Spontaneous
  Country: AU (occurrence: AU)
  Receive Date: 20140710
  Receipt Date: 20140919
  Transmission Date: 20150326
  Serious: Yes (Other)
  Sender: FDA-Public Use
  Company Number: AU-BRISTOL-MYERS SQUIBB COMPANY-21167069

PATIENT
  Age: 85 Year
  Sex: Male

DRUGS (1)
  1. ELIQUIS [Suspect]
     Active Substance: APIXABAN
     Indication: CEREBROVASCULAR ACCIDENT PROPHYLAXIS
     Dates: start: 20140331, end: 20140407

REACTIONS (5)
  - Blindness [Not Recovered/Not Resolved]
  - Eye disorder [Unknown]
  - Panic attack [Unknown]
  - Anxiety [Unknown]
  - Abdominal pain [Unknown]
